FAERS Safety Report 5636894-1 (Version None)
Quarter: 2008Q1

REPORT INFORMATION
  Report Type: 
  Country: None (occurrence: None)
  Receive Date: 20080225
  Receipt Date: 20071112
  Transmission Date: 20080703
  Serious: Yes (Hospitalization)
  Sender: FDA-Public Use
  Company Number: FR-ROCHE-499035

PATIENT
  Age: 40 Year
  Sex: Male

DRUGS (11)
  1. CELLCEPT [Suspect]
     Indication: IGA NEPHROPATHY
     Route: 048
     Dates: start: 20050601, end: 20070520
  2. ENALAPRIL MALEATE [Concomitant]
     Indication: DRUG USE FOR UNKNOWN INDICATION
     Route: 048
     Dates: end: 20070401
  3. NEORAL [Concomitant]
     Indication: DRUG USE FOR UNKNOWN INDICATION
     Route: 048
     Dates: start: 20050601, end: 20070501
  4. AMLOR [Concomitant]
     Indication: DRUG USE FOR UNKNOWN INDICATION
     Route: 048
     Dates: end: 20070702
  5. VASTEN [Concomitant]
     Indication: DRUG USE FOR UNKNOWN INDICATION
     Route: 048
     Dates: start: 20050601
  6. SOLUPRED [Concomitant]
     Indication: DRUG USE FOR UNKNOWN INDICATION
     Route: 048
  7. CORTICOSTEROIDS [Concomitant]
  8. STATIN [Concomitant]
     Dates: end: 20070429
  9. ANGIOTENSIN CONVERTING ENZYME INHIBITOR [Concomitant]
  10. CYCLOSPORINE [Concomitant]
  11. CYCLOSPORINE [Concomitant]
     Dosage: DOSE WAS DECREASED.

REACTIONS (13)
  - AFFECTIVE DISORDER [None]
  - CEREBELLAR SYNDROME [None]
  - CONVULSION [None]
  - DELUSION [None]
  - ENCEPHALOPATHY [None]
  - HALLUCINATION [None]
  - LYME DISEASE [None]
  - MANIA [None]
  - MENINGITIS [None]
  - NO THERAPEUTIC RESPONSE [None]
  - OPSOCLONUS MYOCLONUS [None]
  - ORTHOSTATIC HYPOTENSION [None]
  - PARAESTHESIA [None]
